FAERS Safety Report 22350156 (Version 2)
Quarter: 2025Q2

REPORT INFORMATION
  Report Type: Spontaneous
  Country: US (occurrence: US)
  Receive Date: 20230522
  Receipt Date: 20250613
  Transmission Date: 20250716
  Serious: No
  Sender: Kenvue
  Company Number: US-JNJFOC-20230528510

PATIENT

DRUGS (1)
  1. ZYRTEC [Suspect]
     Active Substance: CETIRIZINE HYDROCHLORIDE
     Indication: Product used for unknown indication
     Route: 065

REACTIONS (3)
  - Withdrawal syndrome [Unknown]
  - Pruritus [Unknown]
  - Hypersensitivity [Unknown]
